FAERS Safety Report 6148652-2 (Version None)
Quarter: 2009Q2

REPORT INFORMATION
  Report Type: 
  Country: None (occurrence: None)
  Receive Date: 20090408
  Receipt Date: 20090327
  Transmission Date: 20091009
  Serious: Yes (Other)
  Sender: FDA-Public Use
  Company Number: US-PFIZER INC-2009191854

PATIENT
  Sex: Female
  Weight: 70.295 kg

DRUGS (5)
  1. CHANTIX [Suspect]
     Indication: SMOKING CESSATION THERAPY
     Dosage: 0.5 MG, 1X/DAY
     Dates: start: 20080301
  2. CHANTIX [Suspect]
     Dosage: 1 MG, 2X/DAY
     Dates: start: 20080301, end: 20080101
  3. EFFEXOR [Suspect]
     Indication: ANXIETY
     Dosage: 75 MG, UNKNOWN
     Dates: start: 20020101
  4. EFFEXOR [Suspect]
     Indication: DEPRESSION
  5. PROTONIX [Concomitant]
     Dosage: UNKNOWN

REACTIONS (3)
  - AGGRESSION [None]
  - NAUSEA [None]
  - PARANOIA [None]
